FAERS Safety Report 6727450-2 (Version None)
Quarter: 2010Q2

REPORT INFORMATION
  Report Type: 
  Country: None (occurrence: None)
  Receive Date: 20100517
  Receipt Date: 20100505
  Transmission Date: 20101027
  Serious: Yes (Other)
  Sender: FDA-Public Use
  Company Number: AU-BAYER-201024788GPV

PATIENT
  Age: 88 Year
  Sex: Male

DRUGS (5)
  1. ASPIRIN [Suspect]
     Indication: DRUG USE FOR UNKNOWN INDICATION
  2. WARFARIN SODIUM [Suspect]
     Indication: DRUG USE FOR UNKNOWN INDICATION
  3. METOPROLOL TARTRATE [Concomitant]
  4. PERINDOPRIL [Concomitant]
  5. SIMVASTATIN [Concomitant]

REACTIONS (7)
  - ATRIAL FIBRILLATION [None]
  - BLINDNESS UNILATERAL [None]
  - DRUG INTERACTION [None]
  - EYE HAEMORRHAGE [None]
  - INTERNATIONAL NORMALISED RATIO INCREASED [None]
  - RETINAL HAEMORRHAGE [None]
  - VITREOUS HAEMORRHAGE [None]
